FAERS Safety Report 10246361 (Version 4)
Quarter: 2014Q4

REPORT INFORMATION
  Report Type: Report from Study
  Country: NZ (occurrence: NZ)
  Receive Date: 20140619
  Receipt Date: 20141121
  Transmission Date: 20150528
  Serious: Yes (Death, Hospitalization)
  Sender: FDA-Public Use
  Company Number: PHHY2014NZ075701

PATIENT
  Age: 60 Year
  Sex: Male

DRUGS (2)
  1. TERAZOSIN [Concomitant]
     Active Substance: TERAZOSIN\TERAZOSIN HYDROCHLORIDE
     Indication: SALIVARY HYPERSECRETION
     Dosage: 1 MG, NOCTE
     Route: 048
     Dates: start: 20130611
  2. CLOZARIL [Suspect]
     Active Substance: CLOZAPINE
     Indication: SCHIZOPHRENIA
     Dosage: 500 MG, NOCTE
     Route: 048
     Dates: start: 20050524

REACTIONS (1)
  - Head injury [Fatal]

NARRATIVE: CASE EVENT DATE: 201406
